FAERS Safety Report 18924396 (Version 4)
Quarter: 2021Q4

REPORT INFORMATION
  Report Type: Spontaneous
  Country: FR (occurrence: FR)
  Receive Date: 20210222
  Receipt Date: 20211014
  Transmission Date: 20220303
  Serious: Yes (Death, Hospitalization, Other)
  Sender: FDA-Public Use
  Company Number: None

PATIENT
  Age: 92 Year
  Sex: Male
  Weight: 61 kg

DRUGS (9)
  1. METHOTREXATE SODIUM [Suspect]
     Active Substance: METHOTREXATE SODIUM
     Indication: Rheumatoid arthritis
     Dosage: 1 DF, 1X/DAY STRENGTH: 10 MG
     Route: 048
     Dates: start: 20210108, end: 20210115
  2. METHOTREXATE SODIUM [Suspect]
     Active Substance: METHOTREXATE SODIUM
     Dosage: 1 DF, WEEKLY STRENGTH: 2.5 MG, NOT ADMINISTERED
     Route: 048
  3. FUROSEMIDE [Concomitant]
     Active Substance: FUROSEMIDE
     Dosage: UNK
     Route: 048
  4. FOLIC ACID [Concomitant]
     Active Substance: FOLIC ACID
     Dosage: UNK
     Route: 048
  5. FOLIC ACID [Concomitant]
     Active Substance: FOLIC ACID
     Route: 048
  6. ZOPICLONE [Concomitant]
     Active Substance: ZOPICLONE
     Dosage: UNK
     Route: 048
  7. BISOPROLOL FUMARATE [Concomitant]
     Active Substance: BISOPROLOL FUMARATE
     Dosage: UNK
     Route: 048
  8. PREDNISOLONE [Concomitant]
     Active Substance: PREDNISOLONE
     Dosage: STRENGTH: 5 MG
     Route: 048
  9. ELIQUIS [Concomitant]
     Active Substance: APIXABAN
     Dosage: 2 DF, 1X/DAY
     Route: 048
     Dates: start: 202012

REACTIONS (21)
  - Pancytopenia [Fatal]
  - Systemic inflammatory response syndrome [Fatal]
  - Renal failure [Fatal]
  - Septic shock [Fatal]
  - Mouth ulceration [Fatal]
  - Anaemia [Fatal]
  - Leukopenia [Fatal]
  - Thrombocytopenia [Fatal]
  - General physical health deterioration [Fatal]
  - Incorrect dose administered [Fatal]
  - Inappropriate schedule of product administration [Fatal]
  - Medication error [Fatal]
  - Product dispensing error [Fatal]
  - Overdose [Fatal]
  - Respiratory disorder [Fatal]
  - Bullous haemorrhagic dermatosis [Unknown]
  - Oropharyngeal discomfort [Unknown]
  - Fatigue [Unknown]
  - Decreased appetite [Unknown]
  - Haemoptysis [Unknown]
  - Lung disorder [Unknown]

NARRATIVE: CASE EVENT DATE: 20210108
